FAERS Safety Report 7113733-3 (Version None)
Quarter: 2010Q4

REPORT INFORMATION
  Report Type: 
  Country: None (occurrence: None)
  Receive Date: 20101119
  Receipt Date: 20101104
  Transmission Date: 20110411
  Serious: Yes (Life-Threatening, Disabling, Other)
  Sender: FDA-Public Use
  Company Number: GB-PFIZER INC-2010141135

PATIENT
  Age: 67 Year
  Sex: Female
  Weight: 74 kg

DRUGS (10)
  1. AMLODIPINE BESYLATE [Suspect]
     Dosage: UNK
     Dates: start: 20071012
  2. CIPROFLOXACIN HCL [Suspect]
     Dosage: UNK
     Dates: start: 20071012
  3. LOSARTAN POTASSIUM [Suspect]
     Indication: HYPERTENSION
     Dosage: 100 MG, 1X/DAY
     Route: 048
     Dates: start: 20070221, end: 20100701
  4. ALENDRONIC ACID [Suspect]
     Dosage: UNK
     Route: 048
     Dates: start: 20071012
  5. AMITRIPTYLINE HYDROCHLORIDE [Suspect]
     Dosage: UNK
     Dates: start: 20100216
  6. FOSAMAX [Suspect]
     Route: 048
  7. RISEDRONATE SODIUM [Suspect]
     Dosage: UNK
     Dates: start: 20071204
  8. AMITRIPTYLINE HYDROCHLORIDE [Concomitant]
     Indication: IRRITABLE BOWEL SYNDROME
     Dosage: 10 MG, UNK
     Dates: start: 20091019, end: 20100205
  9. AMITRIPTYLINE HYDROCHLORIDE [Concomitant]
     Indication: PAIN
  10. LANSOPRAZOLE [Concomitant]
     Indication: HYPERCHLORHYDRIA
     Dosage: 30 MG, UNK
     Dates: start: 20070221, end: 20100921

REACTIONS (8)
  - ABDOMINAL PAIN UPPER [None]
  - ARTHRALGIA [None]
  - DIARRHOEA [None]
  - HEART RATE INCREASED [None]
  - HYPERTENSION [None]
  - IRRITABLE BOWEL SYNDROME [None]
  - NAUSEA [None]
  - PANIC ATTACK [None]
